FAERS Safety Report 5941625-1 (Version None)
Quarter: 2008Q4

REPORT INFORMATION
  Report Type: 
  Country: None (occurrence: None)
  Receive Date: 20081031
  Receipt Date: 20081024
  Transmission Date: 20090506
  Serious: Yes (Other)
  Sender: FDA-Public Use
  Company Number: JPI-P-005218

PATIENT
  Age: 49 Year
  Sex: Male

DRUGS (1)
  1. XYREM [Suspect]
     Indication: DRUG USE FOR UNKNOWN INDICATION
     Dosage: (UNKNOWN), ORAL
     Route: 048

REACTIONS (3)
  - CONFUSIONAL STATE [None]
  - CONVULSION [None]
  - HEAD INJURY [None]
